FAERS Safety Report 5000022-6 (Version None)
Quarter: 2006Q2

REPORT INFORMATION
  Report Type: 
  Country: None (occurrence: None)
  Receive Date: 20060509
  Receipt Date: 20060427
  Transmission Date: 20061013
  Serious: Yes (Death)
  Sender: FDA-Public Use
  Company Number: LTI2006A00108

PATIENT
  Age: 77 Year
  Sex: Female

DRUGS (10)
  1. LANSOPRAZOLE [Suspect]
     Indication: GASTRIC ULCER
     Dosage: 60 MG (30 MG, 2 - 2 ) ORAL
     Route: 048
     Dates: end: 20060115
  2. ANAFRANIL [Suspect]
     Dosage: 100 MG (100 MG, 1 IN 1 D), ORAL
     Route: 048
     Dates: end: 20060115
  3. IMURAN [Suspect]
     Indication: MULTIPLE SCLEROSIS
     Dosage: 100 MG (50 MG, 2 IN 1 D) ORAL
     Route: 048
     Dates: end: 20060102
  4. LIORESAL [Suspect]
     Indication: MULTIPLE SCLEROSIS
     Dosage: 30 MG (10 MG, 3 IN 1 D) ORAL
     Route: 048
     Dates: end: 20060115
  5. CLONAZEPAM [Suspect]
     Dosage: 6 DF (3 DF, 2 IN 1 D) ORAL
     Route: 048
  6. OXAZEPAM [Suspect]
     Dosage: 50 MG (50 MG, 1 IN 1 D) ORAL
     Route: 048
     Dates: end: 20060115
  7. HEXAQUINE (HEXAQUINE) [Concomitant]
  8. PROPOFAN (PROPOFAN) [Concomitant]
  9. DITROPAN [Concomitant]
  10. CANTABILINE (HYMECROMONE) [Concomitant]

REACTIONS (8)
  - ACUTE RESPIRATORY FAILURE [None]
  - ANAEMIA MACROCYTIC [None]
  - ATELECTASIS [None]
  - GASTRIC CANCER [None]
  - LYMPHANGIOSIS CARCINOMATOSA [None]
  - MALIGNANT PLEURAL EFFUSION [None]
  - RETROPERITONEAL EFFUSION [None]
  - SIGNET-RING CELL CARCINOMA [None]
